FAERS Safety Report 6099297-4 (Version None)
Quarter: 2009Q1

REPORT INFORMATION
  Report Type: 
  Country: None (occurrence: None)
  Receive Date: 20090303
  Receipt Date: 20090223
  Transmission Date: 20090719
  Serious: Yes (Other)
  Sender: FDA-Public Use
  Company Number: US-JNJFOC-20060903535

PATIENT
  Sex: Female

DRUGS (4)
  1. RISPERDAL [Suspect]
     Indication: BIPOLAR DISORDER
  2. SEROQUEL [Suspect]
     Indication: PSYCHOTIC DISORDER
  3. SEROQUEL [Suspect]
     Indication: ANXIETY
  4. ZYPREXA [Suspect]
     Indication: BIPOLAR DISORDER

REACTIONS (1)
  - DIABETES MELLITUS [None]
